FAERS Safety Report 10741044 (Version 1)
Quarter: 2015Q1

REPORT INFORMATION
  Report Type: Spontaneous
  Country: GB (occurrence: GB)
  Receive Date: 20150127
  Receipt Date: 20150127
  Transmission Date: 20150721
  Serious: Yes (Other)
  Sender: FDA-Public Use
  Company Number: GB-TEVA-535200ISR

PATIENT
  Age: 62 Year
  Sex: Male

DRUGS (1)
  1. METHOTREXATE [Suspect]
     Active Substance: METHOTREXATE
     Dosage: 25MG INJECTIONS STOPPED AND RECOMMENCED ON 25MG TABLETS.

REACTIONS (2)
  - Flushing [Recovered/Resolved]
  - Malaise [Recovered/Resolved]
